FAERS Safety Report 21279615 (Version 1)
Quarter: 2022Q3

REPORT INFORMATION
  Report Type: Spontaneous
  Country: US (occurrence: None)
  Receive Date: 20220831
  Receipt Date: 20220831
  Transmission Date: 20221026
  Serious: No
  Sender: FDA-Public Use
  Company Number: None

PATIENT
  Age: 70 Year
  Sex: Male

DRUGS (2)
  1. XGEVA [Suspect]
     Active Substance: DENOSUMAB
     Indication: Bone cancer
     Dosage: FREQUENCY : MONTHLY;?
     Route: 058
     Dates: start: 201908
  2. XGEVA [Suspect]
     Active Substance: DENOSUMAB
     Indication: Prostate cancer

REACTIONS (2)
  - Therapy interrupted [None]
  - Intestinal obstruction [None]
